FAERS Safety Report 8329631-3 (Version None)
Quarter: 2012Q2

REPORT INFORMATION
  Report Type: 
  Country: None (occurrence: None)
  Receive Date: 20120502
  Receipt Date: 20090925
  Transmission Date: 20120825
  Serious: No
  Sender: FDA-Public Use
  Company Number: US-TEVA-2009010788

PATIENT
  Sex: Female
  Weight: 59.02 kg

DRUGS (6)
  1. PROVIGIL [Suspect]
     Indication: FATIGUE
     Dosage: 200 MILLIGRAM;
     Route: 048
     Dates: start: 20080101
  2. EFFEXOR XR [Concomitant]
     Dates: start: 20080101
  3. NUVIGIL [Suspect]
     Indication: FATIGUE
     Route: 048
     Dates: start: 20090601
  4. XANAX [Concomitant]
     Dates: start: 19940101
  5. TRAZODONE HCL [Concomitant]
     Dates: start: 20080101
  6. SEROQUEL [Concomitant]
     Dates: start: 20090801

REACTIONS (3)
  - DRUG TOLERANCE [None]
  - LIVER FUNCTION TEST ABNORMAL [None]
  - ANXIETY [None]
